FAERS Safety Report 5373729-9 (Version None)
Quarter: 2007Q2

REPORT INFORMATION
  Report Type: 
  Country: None (occurrence: None)
  Receive Date: 20070615
  Receipt Date: 20060808
  Transmission Date: 20071010
  Serious: Yes (Other)
  Sender: FDA-Public Use
  Company Number: 200610121US

PATIENT
  Age: 48 Year
  Sex: Female
  Weight: 94 kg

DRUGS (12)
  1. LANTUS [Suspect]
     Indication: DIABETES MELLITUS
     Dosage: 30 UG QD
     Dates: start: 20050101
  2. LANTUS [Suspect]
     Indication: DIABETES MELLITUS
     Dosage: 20 U QD
  3. LANTUS [Suspect]
     Indication: DIABETES MELLITUS
     Dosage: 10 U QD
  4. OPTICLIK [Suspect]
     Indication: DIABETES MELLITUS
     Dates: start: 20050101
  5. PIOGLITAZONE [Concomitant]
  6. METOPROLOL TARTRATE [Concomitant]
  7. ENALAPRIL MALEATE [Concomitant]
  8. ASPIRIN [Concomitant]
  9. ESCITALOPRAM OXALATE (LEXAPRO) [Concomitant]
  10. VITAMIN B NOS (VITAMIN B NOS) [Concomitant]
  11. METFORMIN HCL [Concomitant]
  12. ATORVASTATIN CALCIUM, AMLODIPINE BESILATE (CADUET) [Concomitant]

REACTIONS (2)
  - BLOOD GLUCOSE INCREASED [None]
  - HYPERGLYCAEMIA [None]
